FAERS Safety Report 20077502 (Version 1)
Quarter: 2021Q4

REPORT INFORMATION
  Report Type: Spontaneous
  Country: GB (occurrence: GB)
  Receive Date: 20211116
  Receipt Date: 20211116
  Transmission Date: 20220303
  Serious: Yes (Disabling)
  Sender: FDA-Public Use
  Company Number: None

PATIENT
  Age: 78 Year
  Sex: Female
  Weight: 64 kg

DRUGS (23)
  1. CIPROFLOXACIN [Suspect]
     Active Substance: CIPROFLOXACIN
     Indication: Product used for unknown indication
     Dosage: 500 MILLIGRAM, BID
     Dates: start: 20211026
  2. AMITRIPTYLINE HYDROCHLORIDE [Concomitant]
     Active Substance: AMITRIPTYLINE HYDROCHLORIDE
     Dosage: 2 DOSAGE FORM, QD (EACH NIGHT)
     Dates: start: 20210630
  3. AMOXICILLIN [Concomitant]
     Active Substance: AMOXICILLIN
     Dosage: ONE TAKEN THREE TIMES A DAY FOR 5 DAYS. USE AS DIRECTED AS PART OF PLAN TO TREAT EXACERBATIONS.
     Dates: start: 20211014, end: 20211019
  4. CALCIUM CARBONATE\CHOLECALCIFEROL [Concomitant]
     Active Substance: CALCIUM CARBONATE\CHOLECALCIFEROL
     Dosage: 1 DOSAGE FORM, QD
     Dates: start: 20210630
  5. CONOTRANE                          /01805801/ [Concomitant]
     Dosage: APPLY AS BARRIER CREAM TO VULNERABLE INTACT SKIN
     Dates: start: 20210629
  6. DOCUSATE SODIUM [Concomitant]
     Active Substance: DOCUSATE SODIUM
     Dosage: 1 DOSAGE FORM, BID
     Dates: start: 20210630
  7. DOXYCYCLINE [Concomitant]
     Active Substance: DOXYCYCLINE
     Dosage: 1 DOSAGE FORM, QD (TWO NOW THEN ONE DAILY)
     Dates: start: 20211011, end: 20211018
  8. INHALERIN [Concomitant]
     Dosage: 1 DOSAGE FORM
     Route: 055
     Dates: start: 20211021
  9. BECLOMETHASONE\FORMOTEROL [Concomitant]
     Active Substance: BECLOMETHASONE\FORMOTEROL
     Dosage: 2 DOSAGE FORM, BID
     Route: 055
     Dates: start: 20210709
  10. FUROSEMIDE [Concomitant]
     Active Substance: FUROSEMIDE
     Dosage: 1 DOSAGE FORM, QD (EACH MORNING)
     Dates: start: 20210810
  11. GLYCOPYRRONIUM [Concomitant]
     Active Substance: GLYCOPYRRONIUM
     Dosage: 1 DOSAGE FORM, QD
     Route: 055
     Dates: start: 20210709
  12. KETOPROFEN [Concomitant]
     Active Substance: KETOPROFEN
     Dosage: 1 DOSAGE FORM, BID
     Dates: start: 20210803
  13. MICONAZOLE [Concomitant]
     Active Substance: MICONAZOLE
     Dosage: 1 DOSAGE FORM, QID
     Dates: start: 20211025, end: 20211101
  14. MIRTAZAPINE [Concomitant]
     Active Substance: MIRTAZAPINE
     Dosage: 1 DOSAGE FORM, QD IN THE EVENING
     Dates: start: 20210630
  15. NYSTATIN [Concomitant]
     Active Substance: NYSTATIN
     Dosage: UNK SWISH 1ML ROUND THE MOUTH THEN SWALLOW FOUR TIM
     Dates: start: 20211028
  16. OMEPRAZOLE [Concomitant]
     Active Substance: OMEPRAZOLE
     Dosage: 1 DOSAGE FORM, QD
     Dates: start: 20210630
  17. ACETAMINOPHEN [Concomitant]
     Active Substance: ACETAMINOPHEN
     Dosage: 1 DOSAGE FORM, QID (TAKE 1 OR 2 4 TIMES/DAY)
     Dates: start: 20210709
  18. PREDNISOLONE [Concomitant]
     Active Substance: PREDNISOLONE
     Dosage: 6 DOSAGE FORM, QD RESCUE PACK.
     Dates: start: 20210629
  19. PREGABALIN [Concomitant]
     Active Substance: PREGABALIN
     Dosage: 1 DOSAGE FORM, BID
     Dates: start: 20210629
  20. RAMIPRIL [Concomitant]
     Active Substance: RAMIPRIL
     Dosage: 1 DOSAGE FORM, QD
     Dates: start: 20210715
  21. ALBUTEROL [Concomitant]
     Active Substance: ALBUTEROL
     Dosage: 2 DOSAGE FORM
     Route: 055
     Dates: start: 20210709
  22. SENNA                              /00142201/ [Concomitant]
     Dosage: 2 DOSAGE FORM, QD EACH NIGHT
     Dates: start: 20210629
  23. WARFARIN SODIUM [Concomitant]
     Active Substance: WARFARIN SODIUM
     Dosage: 1 DOSAGE FORM (AS DIRECTED)
     Dates: start: 20210629

REACTIONS (3)
  - Dizziness [Recovered/Resolved]
  - Delirium [Unknown]
  - Balance disorder [Unknown]

NARRATIVE: CASE EVENT DATE: 20211103
